FAERS Safety Report 9903462 (Version 1)
Quarter: 2014Q1

REPORT INFORMATION
  Report Type: Report from Study
  Country: FR (occurrence: FR)
  Receive Date: 20140217
  Receipt Date: 20140217
  Transmission Date: 20141002
  Serious: Yes (Other)
  Sender: FDA-Public Use
  Company Number: FR-ABBVIE-14P-056-1201687-00

PATIENT
  Age: 23 Year
  Sex: Female
  Weight: 48 kg

DRUGS (2)
  1. HUMIRA [Suspect]
     Indication: CROHN^S DISEASE
     Route: 058
     Dates: start: 200806
  2. IMUREL [Concomitant]
     Indication: CROHN^S DISEASE
     Dates: start: 201008, end: 20120701

REACTIONS (1)
  - Vulval cancer stage 0 [Recovered/Resolved]
